FAERS Safety Report 16839559 (Version 8)
Quarter: 2021Q4

REPORT INFORMATION
  Report Type: Spontaneous
  Country: US (occurrence: US)
  Receive Date: 20190923
  Receipt Date: 20211001
  Transmission Date: 20220303
  Serious: Yes (Other)
  Sender: FDA-Public Use
  Company Number: US-PFIZER INC-2019405946

PATIENT
  Age: 82 Year
  Sex: Female
  Weight: 81 kg

DRUGS (3)
  1. IBRANCE [Suspect]
     Active Substance: PALBOCICLIB
     Indication: Breast cancer female
     Dosage: 75 MG (FOR 3 MONTHS)
     Route: 048
     Dates: start: 201911
  2. IBRANCE [Suspect]
     Active Substance: PALBOCICLIB
     Dosage: 125 MG
  3. LETROZOLE [Suspect]
     Active Substance: LETROZOLE
     Dosage: UNK (FOR 3 MONTHS)

REACTIONS (7)
  - Choking [Unknown]
  - Neoplasm progression [Unknown]
  - Product use complaint [Unknown]
  - Weight increased [Unknown]
  - Rash [Unknown]
  - Alopecia [Unknown]
  - Hypoacusis [Unknown]
